FAERS Safety Report 6608716-3 (Version None)
Quarter: 2010Q1

REPORT INFORMATION
  Report Type: 
  Country: None (occurrence: None)
  Receive Date: 20100301
  Receipt Date: 20100216
  Transmission Date: 20100710
  Serious: Yes (Hospitalization, Other)
  Sender: FDA-Public Use
  Company Number: PHHY2009FR44786

PATIENT
  Sex: Female
  Weight: 78 kg

DRUGS (7)
  1. RASILEZ [Suspect]
     Indication: HYPERTENSION
     Dosage: 160 MG/DAY
     Route: 048
     Dates: start: 20090820, end: 20091010
  2. ALDACTAZIDE [Suspect]
     Indication: HYPERTENSION
     Dosage: 1 DF, QD
     Dates: start: 20090820, end: 20091010
  3. DILTIAZEM [Concomitant]
     Indication: HYPERTENSION
     Dosage: UNK
     Dates: start: 20090820
  4. ATHYMIL [Concomitant]
     Dosage: 1 DF, QD
  5. SERESTA [Concomitant]
     Dosage: 50 UNK, BID
  6. LORMETAZEPAM [Concomitant]
     Dosage: 2 MG, QD
  7. OFLOCET [Concomitant]
     Dosage: 200 MG, BID

REACTIONS (8)
  - BACK PAIN [None]
  - CONFUSIONAL STATE [None]
  - DYSURIA [None]
  - ESCHERICHIA INFECTION [None]
  - PYELONEPHRITIS [None]
  - PYREXIA [None]
  - RENAL ATROPHY [None]
  - RENAL FAILURE ACUTE [None]
